FAERS Safety Report 21989832 (Version 2)
Quarter: 2023Q1

REPORT INFORMATION
  Report Type: Spontaneous
  Country: US (occurrence: US)
  Receive Date: 20230214
  Receipt Date: 20230217
  Transmission Date: 20230417
  Serious: Yes (Other)
  Sender: FDA-Public Use
  Company Number: US-PFIZER INC-202300062161

PATIENT
  Sex: Female

DRUGS (1)
  1. NURTEC ODT [Suspect]
     Active Substance: RIMEGEPANT SULFATE
     Indication: Migraine
     Dosage: UNK

REACTIONS (10)
  - Pulmonary thrombosis [Unknown]
  - Carotid artery occlusion [Unknown]
  - Cardiac disorder [Unknown]
  - COVID-19 [Unknown]
  - Blood pressure abnormal [Unknown]
  - Headache [Unknown]
  - Liver disorder [Unknown]
  - Nausea [Unknown]
  - Dizziness [Unknown]
  - Renal disorder [Not Recovered/Not Resolved]
